FAERS Safety Report 5506961-1 (Version None)
Quarter: 2007Q4

REPORT INFORMATION
  Report Type: 
  Country: None (occurrence: None)
  Receive Date: 20071102
  Receipt Date: 20071029
  Transmission Date: 20080405
  Serious: Yes (Other)
  Sender: FDA-Public Use
  Company Number: S07-USA-05707-01

PATIENT
  Age: 94 Year
  Sex: Female

DRUGS (8)
  1. NAMENDA [Suspect]
     Indication: DEMENTIA
     Dosage: 5 MG BID PO
     Route: 048
     Dates: start: 20070701
  2. NAMENDA [Suspect]
     Indication: DEMENTIA
     Dosage: 10 MG QD PO
     Route: 048
     Dates: start: 20050101, end: 20060810
  3. DEPAKOTE [Concomitant]
  4. ARICEPT [Concomitant]
  5. RISPERDAL [Concomitant]
  6. SEROQUEL [Concomitant]
  7. ZYPREXA [Concomitant]
  8. LORAZEPAM [Concomitant]

REACTIONS (1)
  - ABASIA [None]
